FAERS Safety Report 25490754 (Version 1)
Quarter: 2025Q2

REPORT INFORMATION
  Report Type: Spontaneous
  Country: US (occurrence: US)
  Receive Date: 20250627
  Receipt Date: 20250627
  Transmission Date: 20250717
  Serious: No
  Sender: BLUEPRINT MEDICINES
  Company Number: US-Blueprint Medicines Corporation-2025-AER-01389

PATIENT
  Sex: Female

DRUGS (1)
  1. AYVAKIT [Suspect]
     Active Substance: AVAPRITINIB
     Indication: Advanced systemic mastocytosis
     Route: 065

REACTIONS (5)
  - Hair colour changes [Unknown]
  - Periorbital swelling [Unknown]
  - Anaemia [Unknown]
  - Fatigue [Unknown]
  - Platelet count decreased [Unknown]
